FAERS Safety Report 11401348 (Version 2)
Quarter: 2016Q2

REPORT INFORMATION
  Report Type: Report from Study
  Country: US (occurrence: US)
  Receive Date: 20150820
  Receipt Date: 20160520
  Transmission Date: 20160815
  Serious: Yes (Hospitalization)
  Sender: FDA-Public Use
  Company Number: US-TARO-2015TAR00766

PATIENT
  Age: 70 Year
  Sex: Male
  Weight: 91.16 kg

DRUGS (1)
  1. SOLARAZE [Suspect]
     Active Substance: DICLOFENAC SODIUM
     Indication: ACTINIC KERATOSIS
     Dosage: 1 APPLICATION, 2X/DAY
     Route: 061
     Dates: start: 20150514, end: 20150811

REACTIONS (2)
  - Wound dehiscence [Unknown]
  - Gangrene [Unknown]

NARRATIVE: CASE EVENT DATE: 20150626
